FAERS Safety Report 7154311-X (Version None)
Quarter: 2010Q4

REPORT INFORMATION
  Report Type: 
  Country: None (occurrence: None)
  Receive Date: 20101213
  Receipt Date: 20101130
  Transmission Date: 20110411
  Serious: Yes (Hospitalization)
  Sender: FDA-Public Use
  Company Number: US-PFIZER INC-2010169073

PATIENT
  Age: 39 Year
  Sex: Male
  Weight: 65 kg

DRUGS (3)
  1. AMIODARONE HCL [Suspect]
     Indication: VENTRICULAR TACHYCARDIA
     Dosage: 400 MG, 1X/DAY
  2. SOTALOL HYDROCHLORIDE [Suspect]
     Indication: VENTRICULAR TACHYCARDIA
     Dosage: 2 G, 3X/DAY
  3. PROCAINAMIDE [Suspect]
     Indication: VENTRICULAR TACHYCARDIA
     Dosage: 160 MG, 2X/DAY

REACTIONS (7)
  - ATRIOVENTRICULAR BLOCK [None]
  - CARDIAC ARREST [None]
  - COMPLICATIONS OF TRANSPLANTED HEART [None]
  - DIZZINESS [None]
  - NAUSEA [None]
  - SKIN DISCOLOURATION [None]
  - VISION BLURRED [None]
